FAERS Safety Report 11339497 (Version 1)
Quarter: 2015Q3

REPORT INFORMATION
  Report Type: Other
  Country: NL (occurrence: NL)
  Receive Date: 20150805
  Receipt Date: 20150805
  Transmission Date: 20151125
  Serious: Yes (Hospitalization)
  Sender: FDA-Public Use
  Company Number: NL-SUN PHARMACEUTICAL INDUSTRIES LTD-2015SUN01738

PATIENT
  Age: 51 Year
  Sex: Female
  Weight: 103 kg

DRUGS (4)
  1. OXALIPLATIN SUN5MG/ML KONZENTRAT ZUR HERSTELLUNG EINER INFUSIONSL?SUNG [Suspect]
     Active Substance: OXALIPLATIN
     Indication: COLON CANCER
     Dosage: 1 DF, 1DOSE PER 3 WEEKS
     Route: 065
     Dates: start: 20150217
  2. OXALIPLATIN (HOSPIRA) [Suspect]
     Active Substance: OXALIPLATIN
     Indication: COLON CANCER
     Dosage: 1 PER THREE WEEKS
     Route: 065
     Dates: start: 20150217
  3. ETHINYLESTRADIOL/DESOGESTREL [Concomitant]
     Active Substance: DESOGESTREL\ETHINYL ESTRADIOL
     Dosage: 1 DF, 1 TIMES PER 1 CYCLE
     Route: 065
     Dates: start: 2013
  4. OXIS TURBUHALER INHALPDR [Concomitant]
     Dosage: 6 MCG, 2 TIMES PER 1 DAY
     Dates: start: 2013

REACTIONS (5)
  - Dyspnoea [Recovered/Resolved]
  - Stridor [Recovered/Resolved]
  - Speech disorder [Recovered/Resolved]
  - Musculoskeletal stiffness [Recovered/Resolved]
  - Hypotension [Recovered/Resolved]

NARRATIVE: CASE EVENT DATE: 20150217
